FAERS Safety Report 6053897-6 (Version None)
Quarter: 2009Q1

REPORT INFORMATION
  Report Type: 
  Country: None (occurrence: None)
  Receive Date: 20090123
  Receipt Date: 20090107
  Transmission Date: 20090719
  Serious: Yes (Death)
  Sender: FDA-Public Use
  Company Number: 2008-0013

PATIENT
  Age: 43 Year
  Sex: Male

DRUGS (1)
  1. DOXEPIN HYDROCHLORIDE [Suspect]

REACTIONS (2)
  - CONVULSION [None]
  - OVERDOSE [None]
